FAERS Safety Report 5113602-4 (Version None)
Quarter: 2006Q3

REPORT INFORMATION
  Report Type: 
  Country: None (occurrence: None)
  Receive Date: 20060925
  Receipt Date: 20060809
  Transmission Date: 20061208
  Serious: Yes (Hospitalization)
  Sender: FDA-Public Use
  Company Number: PHHO2006US13101

PATIENT
  Age: 70 Year
  Sex: Male
  Weight: 105 kg

DRUGS (5)
  1. ZOLEDRONIC ACID VS ALEDRONATE [Suspect]
     Indication: OSTEOPOROSIS
     Dosage: INTRAVENOUS + ORAL
     Dates: start: 20050808
  2. VITAMIN D [Concomitant]
     Indication: OSTEOPOROSIS
  3. CALCIUM GLUCONATE [Concomitant]
     Indication: OSTEOPOROSIS
  4. LOPRESSOR [Suspect]
  5. AMIODARONE HCL [Suspect]

REACTIONS (16)
  - BLOOD PRESSURE DECREASED [None]
  - BRADYCARDIA [None]
  - BRAIN STEM INFARCTION [None]
  - CEREBROVASCULAR ACCIDENT [None]
  - CONFUSIONAL STATE [None]
  - DIPLOPIA [None]
  - DIZZINESS [None]
  - FALL [None]
  - FLUSHING [None]
  - HEART RATE INCREASED [None]
  - HEMIPARESIS [None]
  - IMPLANTABLE DEFIBRILLATOR INSERTION [None]
  - NAUSEA [None]
  - SENSORY LOSS [None]
  - SYNCOPE [None]
  - VENTRICULAR TACHYCARDIA [None]
